FAERS Safety Report 4282835-1 (Version None)
Quarter: 2004Q1

REPORT INFORMATION
  Report Type: 
  Country: None (occurrence: None)
  Receive Date: 20040130
  Receipt Date: 20030519
  Transmission Date: 20041129
  Serious: Yes (Other)
  Sender: FDA-Public Use
  Company Number: US-BRISTOL-MYERS SQUIBB COMPANY-12279907

PATIENT
  Age: 68 Year
  Sex: Female

DRUGS (5)
  1. SERZONE [Suspect]
     Indication: DEPRESSION
     Dosage: ON SERZONE ^FOR A COUPLE OF MONTHS^; 20MG ONCE DAILY
     Route: 048
  2. LOPID [Concomitant]
  3. ZESTRIL [Concomitant]
  4. PREVACID [Concomitant]
  5. LIBRAX [Concomitant]

REACTIONS (3)
  - CHROMATURIA [None]
  - FATIGUE [None]
  - LIVER FUNCTION TEST ABNORMAL [None]
